FAERS Safety Report 15140920 (Version 1)
Quarter: 2018Q3

REPORT INFORMATION
  Report Type: Spontaneous
  Country: US (occurrence: US)
  Receive Date: 20180713
  Receipt Date: 20180713
  Transmission Date: 20181010
  Serious: No
  Sender: FDA-Public Use
  Company Number: US-ASTELLAS-2018US007008

PATIENT
  Sex: Male

DRUGS (1)
  1. MYRBETRIQ [Suspect]
     Active Substance: MIRABEGRON
     Indication: URINARY INCONTINENCE
     Dosage: UNK UNK, ONCE DAILY
     Route: 065
     Dates: start: 201802

REACTIONS (2)
  - Ocular hyperaemia [Recovering/Resolving]
  - Eye irritation [Unknown]

NARRATIVE: CASE EVENT DATE: 20180203
